FAERS Safety Report 20015624 (Version 1)
Quarter: 2021Q4

REPORT INFORMATION
  Report Type: Spontaneous
  Country: US (occurrence: None)
  Receive Date: 20211029
  Receipt Date: 20211029
  Transmission Date: 20220303
  Serious: Yes (Hospitalization)
  Sender: FDA-Public Use
  Company Number: None

PATIENT
  Age: 67 Year
  Sex: Male
  Weight: 87 kg

DRUGS (1)
  1. ERBITUX [Suspect]
     Active Substance: CETUXIMAB
     Dates: end: 20210202

REACTIONS (5)
  - Urinary retention [None]
  - White blood cell count decreased [None]
  - Electrocardiogram QT shortened [None]
  - Blood electrolytes abnormal [None]
  - Antibiotic therapy [None]

NARRATIVE: CASE EVENT DATE: 20210920
